FAERS Safety Report 6701362-2 (Version None)
Quarter: 2010Q2

REPORT INFORMATION
  Report Type: 
  Country: None (occurrence: None)
  Receive Date: 20100429
  Receipt Date: 20100419
  Transmission Date: 20101027
  Serious: Yes (Hospitalization)
  Sender: FDA-Public Use
  Company Number: US-BIOGENIDEC-2010BI013024

PATIENT
  Age: 44 Year
  Sex: Female
  Weight: 83 kg

DRUGS (2)
  1. TYSABRI [Suspect]
     Indication: MULTIPLE SCLEROSIS
     Route: 042
     Dates: start: 20100122
  2. COUMADIN [Concomitant]
     Indication: DEEP VEIN THROMBOSIS

REACTIONS (3)
  - DERMATITIS CONTACT [None]
  - MIGRAINE [None]
  - MULTIPLE SCLEROSIS RELAPSE [None]
